APPROVED DRUG PRODUCT: CHLOROQUINE PHOSPHATE
Active Ingredient: CHLOROQUINE PHOSPHATE
Strength: 500MG
Dosage Form/Route: TABLET;ORAL
Application: A040516 | Product #001 | TE Code: AA
Applicant: IMPAX LABORATORIES INC
Approved: Aug 29, 2003 | RLD: No | RS: No | Type: RX